FAERS Safety Report 18359770 (Version 1)
Quarter: 2020Q4

REPORT INFORMATION
  Report Type: Spontaneous
  Country: US (occurrence: US)
  Receive Date: 20201007
  Receipt Date: 20201007
  Transmission Date: 20210114
  Serious: Yes (Other)
  Sender: FDA-Public Use
  Company Number: None

PATIENT
  Age: 59 Year
  Sex: Female

DRUGS (21)
  1. BUMETANIDE. [Concomitant]
     Active Substance: BUMETANIDE
  2. GABAPENTIN. [Concomitant]
     Active Substance: GABAPENTIN
  3. VOLTAREN TOP GEL [Concomitant]
  4. SILDENAFIL. [Concomitant]
     Active Substance: SILDENAFIL
  5. TRAMADOL. [Concomitant]
     Active Substance: TRAMADOL
  6. NICOTINE TRANSDERMAL SYSTEM [Concomitant]
     Active Substance: NICOTINE
  7. NARCAN [Concomitant]
     Active Substance: NALOXONE HYDROCHLORIDE
  8. ATORVASTATIN [Concomitant]
     Active Substance: ATORVASTATIN
  9. FOLIC ACID. [Concomitant]
     Active Substance: FOLIC ACID
  10. HUMULIN 70/30 [Concomitant]
     Active Substance: INSULIN HUMAN
  11. ASPIRIN. [Concomitant]
     Active Substance: ASPIRIN
  12. DUONEB [Concomitant]
     Active Substance: ALBUTEROL SULFATE\IPRATROPIUM BROMIDE
  13. LIDOCAINE TOP PATCH [Concomitant]
  14. OPSUMIT [Suspect]
     Active Substance: MACITENTAN
     Indication: COR PULMONALE CHRONIC
     Route: 048
     Dates: start: 201902
  15. VENTOLIN HFA [Concomitant]
     Active Substance: ALBUTEROL SULFATE
  16. TYVASO [Concomitant]
     Active Substance: TREPROSTINIL
  17. LOSARTAN. [Concomitant]
     Active Substance: LOSARTAN
  18. SPIRONOLACTONE. [Concomitant]
     Active Substance: SPIRONOLACTONE
  19. ADVAIR HFA [Concomitant]
     Active Substance: FLUTICASONE PROPIONATE\SALMETEROL XINAFOATE
  20. MELATONIN [Concomitant]
     Active Substance: MELATONIN
  21. CYCLOBENZAPRINE. [Concomitant]
     Active Substance: CYCLOBENZAPRINE

REACTIONS (3)
  - Productive cough [None]
  - Dyspnoea [None]
  - Chills [None]

NARRATIVE: CASE EVENT DATE: 20201001
